FAERS Safety Report 25071453 (Version 1)
Quarter: 2025Q1

REPORT INFORMATION
  Report Type: Report from Study
  Country: CO (occurrence: CO)
  Receive Date: 20250312
  Receipt Date: 20250312
  Transmission Date: 20250409
  Serious: Yes (Death)
  Sender: ABBVIE
  Company Number: AR-ABBVIE-6175123

PATIENT
  Age: 64 Year
  Sex: Male

DRUGS (1)
  1. BOTOX [Suspect]
     Active Substance: ONABOTULINUMTOXINA
     Indication: Muscle spasticity
     Route: 030
     Dates: start: 20240918, end: 20240918

REACTIONS (1)
  - Death [Fatal]

NARRATIVE: CASE EVENT DATE: 20250217
